FAERS Safety Report 4420103-5 (Version None)
Quarter: 2004Q3

REPORT INFORMATION
  Report Type: 
  Country: None (occurrence: None)
  Receive Date: 20040806
  Receipt Date: 20040806
  Transmission Date: 20050211
  Serious: Yes (Other)
  Sender: FDA-Public Use
  Company Number: None

PATIENT
  Age: 38 Year
  Sex: Female
  Weight: 48.5349 kg

DRUGS (2)
  1. ZOLOFT [Suspect]
     Indication: ANXIETY
     Dosage: ONCE DAILY
     Dates: start: 20040623, end: 20040805
  2. ZOLOFT [Suspect]
     Indication: DEPRESSION
     Dosage: ONCE DAILY
     Dates: start: 20040623, end: 20040805

REACTIONS (3)
  - DIARRHOEA [None]
  - FREQUENT BOWEL MOVEMENTS [None]
  - LOSS OF LIBIDO [None]
